FAERS Safety Report 14481796 (Version 1)
Quarter: 2018Q1

REPORT INFORMATION
  Report Type: Spontaneous
  Country: US (occurrence: US)
  Receive Date: 20180202
  Receipt Date: 20180202
  Transmission Date: 20180509
  Serious: Yes (Other)
  Sender: FDA-Public Use
  Company Number: US-SEBELA IRELAND LIMITED-2018SEB00016

PATIENT
  Sex: Female

DRUGS (1)
  1. IMURAN [Suspect]
     Active Substance: AZATHIOPRINE

REACTIONS (1)
  - Meningitis aseptic [Unknown]
